FAERS Safety Report 8018036-0 (Version None)
Quarter: 2012Q1

REPORT INFORMATION
  Report Type: 
  Country: None (occurrence: None)
  Receive Date: 20120103
  Receipt Date: 20111222
  Transmission Date: 20120608
  Serious: Yes (Hospitalization)
  Sender: FDA-Public Use
  Company Number: FR-JNJFOC-20111210545

PATIENT
  Age: 81 Year
  Sex: Female
  Weight: 90 kg

DRUGS (3)
  1. XARELTO [Suspect]
     Indication: KNEE ARTHROPLASTY
     Route: 048
     Dates: start: 20111124, end: 20111124
  2. XARELTO [Suspect]
     Route: 048
     Dates: start: 20111125, end: 20111125
  3. XARELTO [Suspect]
     Route: 048
     Dates: start: 20111126, end: 20111126

REACTIONS (1)
  - INCORRECT DOSE ADMINISTERED [None]
